FAERS Safety Report 4873473-8 (Version None)
Quarter: 2005Q4

REPORT INFORMATION
  Report Type: 
  Country: None (occurrence: None)
  Receive Date: 20051201
  Receipt Date: 20050822
  Transmission Date: 20060501
  Serious: No
  Sender: FDA-Public Use
  Company Number: 2005PV001386

PATIENT
  Age: 88 Year
  Sex: Male

DRUGS (7)
  1. BYETTA [Suspect]
     Indication: DIABETES MELLITUS NON-INSULIN-DEPENDENT
     Dosage: 5 MCG; BID; SC
     Route: 058
     Dates: start: 20050801
  2. DERMASIL [Concomitant]
  3. AM-LACTIN AP [Concomitant]
  4. CETAPHIL [Concomitant]
  5. AVEENO [Concomitant]
  6. GLYBURIDE AND METFORMIN HCL [Concomitant]
  7. LANTUS [Concomitant]

REACTIONS (5)
  - DYSPEPSIA [None]
  - HICCUPS [None]
  - HYPERCHLORHYDRIA [None]
  - INJECTION SITE ERYTHEMA [None]
  - INJECTION SITE PRURITUS [None]
